FAERS Safety Report 23775145 (Version 1)
Quarter: 2024Q2

REPORT INFORMATION
  Report Type: Spontaneous
  Country: CN (occurrence: CN)
  Receive Date: 20240423
  Receipt Date: 20240423
  Transmission Date: 20240716
  Serious: Yes (Other)
  Sender: FDA-Public Use
  Company Number: CN-NAPPMUNDI-GBR-2024-0115963

PATIENT
  Age: 57 Year
  Sex: Male
  Weight: 40 kg

DRUGS (5)
  1. OXYCODONE HYDROCHLORIDE [Suspect]
     Active Substance: OXYCODONE HYDROCHLORIDE
     Indication: Analgesic therapy
     Dosage: 10 MILLIGRAM, BID
     Route: 048
     Dates: start: 20240108, end: 20240118
  2. PANTOPRAZOLE SODIUM [Suspect]
     Active Substance: PANTOPRAZOLE SODIUM
     Indication: Gastrointestinal disorder prophylaxis
     Dosage: 40 MILLIGRAM, DAILY
     Route: 041
     Dates: start: 20240104, end: 20240113
  3. PANTOPRAZOLE SODIUM [Suspect]
     Active Substance: PANTOPRAZOLE SODIUM
     Indication: Muscle spasms
  4. GLUTATHIONE [Suspect]
     Active Substance: GLUTATHIONE
     Indication: Liver disorder
     Dosage: 1.2 GRAM, DAILY
     Route: 041
     Dates: start: 20240104, end: 20240118
  5. SODIUM CHLORIDE [Concomitant]
     Active Substance: SODIUM CHLORIDE
     Indication: Vehicle solution use
     Dosage: 100 MILLILITER, DAILY
     Route: 042
     Dates: start: 20240104, end: 20240118

REACTIONS (1)
  - Platelet count decreased [Recovering/Resolving]

NARRATIVE: CASE EVENT DATE: 20240113
